FAERS Safety Report 7531798-1 (Version None)
Quarter: 2011Q2

REPORT INFORMATION
  Report Type: 
  Country: None (occurrence: None)
  Receive Date: 20110608
  Receipt Date: 20110530
  Transmission Date: 20111010
  Serious: Yes (Other)
  Sender: FDA-Public Use
  Company Number: JP-ROCHE-780577

PATIENT
  Age: 56 Year
  Sex: Female

DRUGS (2)
  1. OXALIPLATIN [Concomitant]
     Dosage: START DATE AND FREQUENCY NOT REPORTED. DOSAGE IS UNCERTAIN.
     Route: 041
  2. XELODA [Suspect]
     Indication: LARGE INTESTINE CARCINOMA
     Dosage: START DATE AND FREQUENCY NOT REPORTED. DOSAGE IS UNCERTAIN.
     Route: 048

REACTIONS (2)
  - ILEUS PARALYTIC [None]
  - CAPILLARY PERMEABILITY INCREASED [None]
